FAERS Safety Report 10648628 (Version 3)
Quarter: 2014Q4

REPORT INFORMATION
  Report Type: Spontaneous
  Country: JP (occurrence: JP)
  Receive Date: 20141212
  Receipt Date: 20141225
  Transmission Date: 20150529
  Serious: Yes (Congenital Anomaly)
  Sender: FDA-Public Use
  Company Number: JP-ROCHE-1505913

PATIENT
  Age: 1 Day

DRUGS (1)
  1. AVASTIN [Suspect]
     Active Substance: BEVACIZUMAB
     Indication: PRODUCT USED FOR UNKNOWN INDICATION
     Dosage: TIMES OF UNCERTAINTY FIVE DOSAGE
     Route: 064
     Dates: start: 2008, end: 201305

REACTIONS (3)
  - Atrial septal defect [Unknown]
  - Hydronephrosis [Recovering/Resolving]
  - Foetal exposure during pregnancy [Unknown]
